FAERS Safety Report 19492598 (Version 3)
Quarter: 2021Q4

REPORT INFORMATION
  Report Type: Other
  Country: GR (occurrence: GR)
  Receive Date: 20210705
  Receipt Date: 20211101
  Transmission Date: 20220303
  Serious: Yes (Other)
  Sender: FDA-Public Use
  Company Number: GR-ROCHE-2861448

PATIENT
  Age: 40 Year
  Sex: Female

DRUGS (2)
  1. ADALIMUMAB [Suspect]
     Active Substance: ADALIMUMAB
     Indication: Rheumatoid arthritis
     Route: 065
  2. TOCILIZUMAB [Suspect]
     Active Substance: TOCILIZUMAB
     Indication: Rheumatoid arthritis
     Route: 065

REACTIONS (5)
  - Leukoencephalopathy [Recovered/Resolved]
  - Parinaud syndrome [Recovered/Resolved]
  - Ophthalmoplegia [Recovered/Resolved]
  - Meningitis [Recovered/Resolved]
  - Mycobacterium tuberculosis complex test positive [Unknown]
